FAERS Safety Report 6042166-6 (Version None)
Quarter: 2009Q1

REPORT INFORMATION
  Report Type: 
  Country: None (occurrence: None)
  Receive Date: 20090116
  Receipt Date: 20090107
  Transmission Date: 20090719
  Serious: Yes (Other)
  Sender: FDA-Public Use
  Company Number: PHHY2009BE01122

PATIENT
  Age: 8 Year
  Sex: Male

DRUGS (2)
  1. RITALIN [Suspect]
     Dosage: 20 MG, BID
     Route: 048
  2. RITALIN [Suspect]
     Dosage: 10 MG AM 20 MG PM
     Route: 048

REACTIONS (1)
  - CHEST PAIN [None]
